FAERS Safety Report 5813630-7 (Version None)
Quarter: 2008Q3

REPORT INFORMATION
  Report Type: 
  Country: None (occurrence: None)
  Receive Date: 20080717
  Receipt Date: 20080709
  Transmission Date: 20090109
  Serious: Yes (Hospitalization)
  Sender: FDA-Public Use
  Company Number: FR-JNJFOC-20080503416

PATIENT
  Sex: Female
  Weight: 100 kg

DRUGS (7)
  1. RISPERDAL [Suspect]
     Indication: DYSTHYMIC DISORDER
     Route: 048
  2. RISPERDAL [Suspect]
     Indication: SCHIZOPHRENIA
     Route: 048
  3. TERCIAN [Suspect]
     Indication: ANXIETY
     Route: 048
  4. NOCTRAN [Suspect]
     Indication: INSOMNIA
     Route: 048
  5. PARLODEL [Concomitant]
  6. EFFEXOR [Concomitant]
     Indication: DYSTHYMIC DISORDER
     Route: 048
  7. LEPTICUR [Concomitant]
     Indication: PARKINSONISM
     Route: 048

REACTIONS (3)
  - AMENORRHOEA [None]
  - BREAST ABSCESS [None]
  - GALACTORRHOEA [None]
